FAERS Safety Report 13735793 (Version 3)
Quarter: 2017Q3

REPORT INFORMATION
  Report Type: Spontaneous
  Country: AT (occurrence: AT)
  Receive Date: 20170710
  Receipt Date: 20170811
  Transmission Date: 20171127
  Serious: Yes (Hospitalization, Other)
  Sender: FDA-Public Use
  Company Number: AT-CONCORDIA PHARMACEUTICALS INC.-E2B_00008229

PATIENT
  Age: 28 Year
  Sex: Female

DRUGS (9)
  1. LINEZOLID. [Suspect]
     Active Substance: LINEZOLID
     Dosage: ON DAY -14 TO 0
  2. FLUCLOXACILLIN [Suspect]
     Active Substance: FLUCLOXACILLIN
     Dosage: ON DAY -16 TO -15
  3. MOXIFLOXACIN. [Suspect]
     Active Substance: MOXIFLOXACIN
     Dosage: ON DAY -27 TO -21
  4. BENZYLPENICILLIN [Suspect]
     Active Substance: PENICILLIN G
     Dosage: ON DAY -16 TO -15
  5. CEFTRIAXONE. [Suspect]
     Active Substance: CEFTRIAXONE
     Dosage: ON DAY -21 TO -17
  6. MEROPENEM. [Suspect]
     Active Substance: MEROPENEM
     Dosage: ON DAY -14 TO 0
  7. DEXAMETHASONE. [Suspect]
     Active Substance: DEXAMETHASONE
     Dosage: ON DAY -7 TO 0
  8. PREDNISOLONE. [Suspect]
     Active Substance: PREDNISOLONE
     Indication: STILL^S DISEASE
  9. DOXYCYCLINE. [Suspect]
     Active Substance: DOXYCYCLINE
     Dosage: ON DAY -21 TO -17

REACTIONS (1)
  - Enterocolitis [Recovered/Resolved]
